FAERS Safety Report 9013431 (Version 1)
Quarter: 2013Q1

REPORT INFORMATION
  Report Type: Spontaneous
  Country: US (occurrence: None)
  Receive Date: 20130107
  Receipt Date: 20130107
  Transmission Date: 20140127
  Serious: Yes (Other)
  Sender: FDA-Public Use
  Company Number: None

PATIENT
  Age: 45 Year
  Sex: Female

DRUGS (2)
  1. COPAXONE [Suspect]
     Dosage: 1 TIME ONLY - 12/7/12 APPROX
     Route: 058
     Dates: start: 20121207
  2. REBIF [Suspect]
     Dosage: IM
     Route: 030

REACTIONS (2)
  - Tremor [None]
  - Dyspnoea [None]
